FAERS Safety Report 5024309-6 (Version None)
Quarter: 2006Q2

REPORT INFORMATION
  Report Type: 
  Country: None (occurrence: None)
  Receive Date: 20060607
  Receipt Date: 20060525
  Transmission Date: 20061013
  Serious: Yes (Other)
  Sender: FDA-Public Use
  Company Number: 225712

PATIENT
  Age: 43 Year
  Sex: Female

DRUGS (1)
  1. MABTHERA                         (RITUXIMAB) [Suspect]
     Indication: DERMATOMYOSITIS
     Dosage: INTRAVENOUS
     Route: 042

REACTIONS (5)
  - CARDIAC FAILURE [None]
  - DERMATOMYOSITIS [None]
  - DISEASE PROGRESSION [None]
  - OFF LABEL USE [None]
  - VASCULITIS [None]
